FAERS Safety Report 9457849 (Version 3)
Quarter: 2013Q4

REPORT INFORMATION
  Report Type: Report from Study
  Country: ES (occurrence: ES)
  Receive Date: 20130814
  Receipt Date: 20131206
  Transmission Date: 20140711
  Serious: Yes (Other)
  Sender: FDA-Public Use
  Company Number: ES-ROCHE-1260289

PATIENT
  Age: 49 Year
  Sex: Male
  Weight: 107 kg

DRUGS (3)
  1. PEG-INTERFERON ALFA 2A [Suspect]
     Indication: HEPATITIS C
     Dosage: LAST DOSE WAS 03/MAY/2013
     Route: 058
     Dates: start: 20120602
  2. RIBAVIRIN [Suspect]
     Indication: HEPATITIS C
     Dosage: LAST DOSE WAS 03/MAY/2013
     Route: 048
     Dates: start: 20120102
  3. BOCEPREVIR [Suspect]
     Indication: HEPATITIS C
     Dosage: LAST DOSE WAS ON 08/FEB/2013
     Route: 048
     Dates: start: 20120701

REACTIONS (3)
  - Pancytopenia [Recovered/Resolved]
  - Dysgeusia [Recovered/Resolved]
  - Leukopenia [Recovered/Resolved]
